FAERS Safety Report 6478818-3 (Version None)
Quarter: 2009Q4

REPORT INFORMATION
  Report Type: 
  Country: None (occurrence: None)
  Receive Date: 20091202
  Receipt Date: 20091118
  Transmission Date: 20100525
  Serious: Yes (Hospitalization, Other)
  Sender: FDA-Public Use
  Company Number: 060004L09JPN

PATIENT
  Age: 34 Year
  Sex: Female

DRUGS (1)
  1. CLOMIPHENE CITRATE [Suspect]
     Indication: OVULATION INDUCTION

REACTIONS (4)
  - DIAPHRAGMATIC RUPTURE [None]
  - MUSCULOSKELETAL PAIN [None]
  - PNEUMOTHORAX [None]
  - PULMONARY FIBROSIS [None]
